FAERS Safety Report 10362708 (Version 2)
Quarter: 2014Q3

REPORT INFORMATION
  Report Type: Report from Study
  Country: JP (occurrence: JP)
  Receive Date: 20140805
  Receipt Date: 20140805
  Transmission Date: 20150326
  Serious: Yes (Other)
  Sender: FDA-Public Use
  Company Number: JP-PFIZER INC-2014206976

PATIENT

DRUGS (2)
  1. FOSPHENYTOIN SODIUM. [Suspect]
     Active Substance: FOSPHENYTOIN SODIUM
     Indication: CONVULSION
     Dosage: LOADING DOSE OF 22.5 MG/KG
     Route: 042
  2. FOSPHENYTOIN SODIUM. [Suspect]
     Active Substance: FOSPHENYTOIN SODIUM
     Dosage: THREE MAINTENANCE DOSES OF 7.5 MG/KG
     Route: 042

REACTIONS (3)
  - Anticonvulsant drug level above therapeutic [Unknown]
  - Dyskinesia [Unknown]
  - Apnoea [Unknown]
